FAERS Safety Report 24127197 (Version 1)
Quarter: 2024Q3

REPORT INFORMATION
  Report Type: Spontaneous
  Country: JP (occurrence: JP)
  Receive Date: 20240723
  Receipt Date: 20240723
  Transmission Date: 20241017
  Serious: No
  Sender: MYOVANT SCIENCES
  Company Number: JP-MYOVANT SCIENCES GMBH-2024MYSCI0501282

PATIENT
  Age: 43 Year
  Sex: Female

DRUGS (4)
  1. RELUGOLIX [Suspect]
     Active Substance: RELUGOLIX
     Indication: Endometriosis
     Dosage: 40 MILLIGRAM, QD
     Route: 048
     Dates: start: 20240316, end: 20240405
  2. RELUGOLIX [Suspect]
     Active Substance: RELUGOLIX
     Indication: Endometriosis
  3. RELUGOLIX [Suspect]
     Active Substance: RELUGOLIX
     Indication: Uterine leiomyoma
  4. RELUGOLIX [Suspect]
     Active Substance: RELUGOLIX
     Indication: Dysmenorrhoea

REACTIONS (3)
  - Chest pain [Recovered/Resolved]
  - Hypertension [Not Recovered/Not Resolved]
  - Headache [Recovered/Resolved]

NARRATIVE: CASE EVENT DATE: 20240401
